FAERS Safety Report 4384821-X (Version None)
Quarter: 2004Q2

REPORT INFORMATION
  Report Type: 
  Country: None (occurrence: None)
  Receive Date: 20040621
  Receipt Date: 20040614
  Transmission Date: 20050107
  Serious: Yes (Other)
  Sender: FDA-Public Use
  Company Number: RGD: 54756/ 437

PATIENT

DRUGS (1)
  1. LEVONELLE-2 (LEVONORGESTREL) COATED TABLET [Suspect]
     Indication: POST COITAL CONTRACEPTION
     Dosage: 2 DOSES, ORAL
     Route: 048
     Dates: start: 20040501

REACTIONS (3)
  - ABORTION [None]
  - METRORRHAGIA [None]
  - UNINTENDED PREGNANCY [None]
